FAERS Safety Report 10084571 (Version 2)
Quarter: 2014Q2

REPORT INFORMATION
  Report Type: Spontaneous
  Country: US (occurrence: US)
  Receive Date: 20140417
  Receipt Date: 20140508
  Transmission Date: 20141212
  Serious: No
  Sender: FDA-Public Use
  Company Number: US-GLAXOSMITHKLINE-A1068672A

PATIENT
  Age: 60 Year
  Sex: Female
  Weight: 89.5 kg

DRUGS (2)
  1. ALLI [Suspect]
     Indication: WEIGHT LOSS DIET
     Route: 048
  2. UNKNOWN MEDICATION [Suspect]

REACTIONS (5)
  - Gastrointestinal disorder [Recovered/Resolved]
  - Colitis [Recovered/Resolved]
  - Bacterial infection [Recovered/Resolved]
  - Viral infection [Recovered/Resolved]
  - Decreased appetite [Recovered/Resolved]
